FAERS Safety Report 6672740-5 (Version None)
Quarter: 2010Q2

REPORT INFORMATION
  Report Type: 
  Country: None (occurrence: None)
  Receive Date: 20100408
  Receipt Date: 20100402
  Transmission Date: 20101027
  Serious: Yes (Death)
  Sender: FDA-Public Use
  Company Number: JP-ROCHE-695814

PATIENT
  Sex: Female

DRUGS (16)
  1. TOCILIZUMAB [Suspect]
     Indication: RHEUMATOID ARTHRITIS
     Route: 041
     Dates: start: 20081010, end: 20081010
  2. TOCILIZUMAB [Suspect]
     Route: 041
     Dates: start: 20081105, end: 20081105
  3. TOCILIZUMAB [Suspect]
     Route: 041
     Dates: start: 20081205, end: 20081205
  4. TOCILIZUMAB [Suspect]
     Route: 041
     Dates: start: 20090107, end: 20090107
  5. TOCILIZUMAB [Suspect]
     Route: 041
     Dates: start: 20090204, end: 20090204
  6. TOCILIZUMAB [Suspect]
     Route: 041
     Dates: start: 20090304, end: 20090304
  7. TOCILIZUMAB [Suspect]
     Route: 041
     Dates: start: 20090408, end: 20091209
  8. ISONIAZID [Concomitant]
     Dosage: DRUG REPORTED AS: ISCOTIN(ISONIAZID) DOSE FORM: PERORAL AGENT
     Route: 048
     Dates: start: 20080919
  9. PREDNISOLONE [Concomitant]
     Dosage: DRUG: UNKNOWNDRUG (PREDNISOLONE) DOSE FORM: PERORAL AGENT
     Route: 048
     Dates: end: 20081104
  10. PREDNISOLONE [Concomitant]
     Dosage: DRUG: UNKNOWNDRUG (PREDNISOLONE) DOSE FORM: PERORAL AGENT
     Route: 048
     Dates: start: 20081105, end: 20090407
  11. RISEDRONIC ACID [Concomitant]
     Dosage: DRUG REPORTED AS: BENET(SODIUM RISEDRONATE HYDRATE)
     Route: 048
     Dates: start: 20080919
  12. RABEPRAZOLE SODIUM [Concomitant]
     Dosage: DRUG: PARIET(SODIUM RABEPRAZOLE)
     Route: 048
     Dates: start: 20080919
  13. LIMAPROST [Concomitant]
     Dosage: DRUG: OPALMON(LIMAPROST ALFADEX)
     Route: 048
     Dates: start: 20080919
  14. PYRIDOXAL PHOSPHATE [Concomitant]
     Dosage: DRUG REPORTED AS: PYDOXAL TAB(PYRIDOXAL PHOSPHATE)
     Route: 048
     Dates: start: 20080919
  15. SULFAMETHOXAZOLE AND TRIMETHOPRIM [Concomitant]
     Dosage: DRUG: BAKTAR(SULFAMETHOXAZOLE_TRIMETHOPRIM)
     Route: 048
     Dates: start: 20080919
  16. MELOXICAM [Concomitant]
     Dosage: DRUG:  MOBIC(MELOXICAM)
     Route: 048
     Dates: start: 20080919

REACTIONS (1)
  - RENAL FAILURE ACUTE [None]
